FAERS Safety Report 18318710 (Version 2)
Quarter: 2020Q4

REPORT INFORMATION
  Report Type: Spontaneous
  Country: PR (occurrence: PR)
  Receive Date: 20200928
  Receipt Date: 20201102
  Transmission Date: 20210113
  Serious: No
  Sender: FDA-Public Use
  Company Number: PR-JNJFOC-20200935313

PATIENT
  Age: 66 Year
  Sex: Male
  Weight: 88.53 kg

DRUGS (2)
  1. ERLEADA [Suspect]
     Active Substance: APALUTAMIDE
     Indication: PRODUCT USED FOR UNKNOWN INDICATION
     Dosage: JUL/ AUG 4TH
     Route: 048
  2. TRELSTAR [Concomitant]
     Active Substance: TRIPTORELIN PAMOATE
     Indication: ANTIANDROGEN THERAPY
     Dates: start: 202004

REACTIONS (1)
  - Rash [Unknown]
